FAERS Safety Report 24395548 (Version 1)
Quarter: 2024Q4

REPORT INFORMATION
  Report Type: Spontaneous
  Country: GB (occurrence: GB)
  Receive Date: 20241004
  Receipt Date: 20241004
  Transmission Date: 20250114
  Serious: Yes (Disabling, Other)
  Sender: AUROBINDO
  Company Number: GB-MHRA-MED-202409242317203620-JSLMP

PATIENT
  Age: 60 Year
  Sex: Female
  Weight: 95 kg

DRUGS (2)
  1. QUETIAPINE [Suspect]
     Active Substance: QUETIAPINE
     Indication: Bipolar I disorder
     Dosage: 300 MILLIGRAM, ONCE A DAY (300MG ONCE A DAY AT NIGHT USUALLY - HIGHER DOSAGES PRESCRIBED IN HOSPITAL
     Route: 065
     Dates: start: 19980606, end: 20240606
  2. ZOPICLONE [Concomitant]
     Active Substance: ZOPICLONE
     Indication: Insomnia
     Dosage: UNK
     Route: 065
     Dates: start: 20160101

REACTIONS (1)
  - Osteoarthritis [Not Recovered/Not Resolved]

NARRATIVE: CASE EVENT DATE: 20240101
